FAERS Safety Report 6053319-5 (Version None)
Quarter: 2009Q1

REPORT INFORMATION
  Report Type: 
  Country: None (occurrence: None)
  Receive Date: 20090127
  Receipt Date: 20090121
  Transmission Date: 20090719
  Serious: Yes (Hospitalization)
  Sender: FDA-Public Use
  Company Number: A0765156A

PATIENT
  Age: 42 Year
  Sex: Male
  Weight: 88.8 kg

DRUGS (3)
  1. MELPHALAN [Suspect]
     Indication: AMYLOIDOSIS
     Dosage: 100MGM2 PER DAY
     Route: 042
     Dates: start: 20081201, end: 20081202
  2. VELCADE [Suspect]
     Indication: AMYLOIDOSIS
     Route: 042
  3. DEXAMETHASONE [Suspect]
     Indication: AMYLOIDOSIS
     Route: 048

REACTIONS (2)
  - PYREXIA [None]
  - RASH [None]
